FAERS Safety Report 24221832 (Version 1)
Quarter: 2024Q3

REPORT INFORMATION
  Report Type: Spontaneous
  Country: US (occurrence: US)
  Receive Date: 20240819
  Receipt Date: 20240819
  Transmission Date: 20241016
  Serious: Yes (Hospitalization, Other)
  Sender: HETERO
  Company Number: US-AMAROX PHARMA-HET2024US02705

PATIENT
  Age: 58 Year
  Sex: Male

DRUGS (3)
  1. FINGOLIMOD [Suspect]
     Active Substance: FINGOLIMOD
     Indication: Relapsing-remitting multiple sclerosis
     Dosage: 0.5 MILLIGRAM, QD
     Route: 048
     Dates: start: 201501
  2. FINGOLIMOD [Suspect]
     Active Substance: FINGOLIMOD
     Indication: Lymphopenia
     Dosage: 0.5 MILLIGRAM EVERY OTHER DAY
     Route: 048
  3. MODERNA COVID-19 VACCINE [Suspect]
     Active Substance: ELASOMERAN
     Indication: COVID-19
     Dosage: UNK (MRNA-1273)
     Route: 065

REACTIONS (2)
  - Histoplasmosis disseminated [Recovering/Resolving]
  - Immunosuppression [Recovering/Resolving]
